FAERS Safety Report 7558030-7 (Version None)
Quarter: 2011Q2

REPORT INFORMATION
  Report Type: 
  Country: None (occurrence: None)
  Receive Date: 20110525
  Receipt Date: 20110207
  Transmission Date: 20111010
  Serious: No
  Sender: FDA-Public Use
  Company Number: 323220

PATIENT
  Age: 58 Year
  Sex: Female

DRUGS (3)
  1. VICTOZA [Suspect]
     Indication: TYPE 2 DIABETES MELLITUS
     Dosage: 1.2 MG, QD, SUBCUTANEOUS
     Route: 058
  2. XANAX [Concomitant]
  3. PRILOSEC [Concomitant]

REACTIONS (3)
  - DECREASED APPETITE [None]
  - ERUCTATION [None]
  - VOMITING [None]
